FAERS Safety Report 6206835-7 (Version None)
Quarter: 2009Q2

REPORT INFORMATION
  Report Type: 
  Country: None (occurrence: None)
  Receive Date: 20090528
  Receipt Date: 20090518
  Transmission Date: 20091009
  Serious: Yes (Hospitalization, Other)
  Sender: FDA-Public Use
  Company Number: JP-BAXTER-2009BH008814

PATIENT
  Age: 63 Year
  Sex: Male

DRUGS (16)
  1. ENDOXAN BAXTER [Suspect]
     Indication: MANTLE CELL LYMPHOMA
     Route: 065
     Dates: start: 20060301, end: 20060801
  2. VINCRISTINE SULFATE [Suspect]
     Indication: MANTLE CELL LYMPHOMA
     Route: 065
     Dates: start: 20060301, end: 20060801
  3. DOXORUBICIN HYDROCHLORIDE [Suspect]
     Indication: MANTLE CELL LYMPHOMA
     Route: 065
     Dates: start: 20060301, end: 20060801
  4. DEXAMETHASONE 4MG TAB [Suspect]
     Indication: MANTLE CELL LYMPHOMA
     Route: 065
     Dates: start: 20060301, end: 20060401
  5. RITUXIMAB [Suspect]
     Indication: MANTLE CELL LYMPHOMA
     Route: 065
     Dates: start: 20060301, end: 20060801
  6. RITUXIMAB [Suspect]
     Route: 065
     Dates: start: 20060901, end: 20060901
  7. METHOTREXATE [Suspect]
     Indication: MANTLE CELL LYMPHOMA
     Route: 065
     Dates: start: 20060101, end: 20060101
  8. METHOTREXATE [Suspect]
     Route: 065
     Dates: start: 20060101, end: 20060101
  9. METHOTREXATE [Suspect]
     Route: 065
     Dates: start: 20060901, end: 20060901
  10. STARASID [Suspect]
     Indication: MANTLE CELL LYMPHOMA
     Route: 065
     Dates: start: 20060301, end: 20060801
  11. STARASID [Suspect]
     Route: 065
     Dates: start: 20060901, end: 20060901
  12. METHYLPREDNISOLONE [Suspect]
     Indication: MANTLE CELL LYMPHOMA
     Route: 065
     Dates: start: 20060301, end: 20060801
  13. METHYLPREDNISOLONE [Suspect]
     Route: 065
     Dates: start: 20060901, end: 20060901
  14. LEVOFLOXACIN [Concomitant]
     Indication: INFECTION PROPHYLAXIS
     Route: 065
     Dates: start: 20060501, end: 20060801
  15. PIPERACILLIN SODIUM [Concomitant]
     Indication: DRUG USE FOR UNKNOWN INDICATION
     Route: 065
     Dates: start: 20060301, end: 20060301
  16. PENIPENEM/BETAMIPRON [Concomitant]
     Indication: ANTIBIOTIC PROPHYLAXIS
     Route: 065
     Dates: start: 20060301, end: 20060401

REACTIONS (3)
  - NEUTROPENIA [None]
  - OSTEOMYELITIS [None]
  - OSTEONECROSIS [None]
